FAERS Safety Report 4979385-3 (Version None)
Quarter: 2006Q2

REPORT INFORMATION
  Report Type: 
  Country: None (occurrence: None)
  Receive Date: 20060421
  Receipt Date: 20050414
  Transmission Date: 20061013
  Serious: Yes (Hospitalization)
  Sender: FDA-Public Use
  Company Number: US-MERCK-0504USA02357

PATIENT
  Age: 62 Year
  Sex: Female
  Weight: 93 kg

DRUGS (3)
  1. VIOXX [Suspect]
     Indication: ARTHRALGIA
     Route: 048
     Dates: start: 20010401, end: 20030801
  2. VIOXX [Suspect]
     Indication: ARTHRITIS
     Route: 048
     Dates: start: 20010401, end: 20030801
  3. TYLENOL (CAPLET) [Concomitant]
     Route: 065

REACTIONS (4)
  - CARDIAC FAILURE [None]
  - CHEST PAIN [None]
  - CHRONIC OBSTRUCTIVE PULMONARY DISEASE [None]
  - MYOCARDIAL INFARCTION [None]
